FAERS Safety Report 15622945 (Version 2)
Quarter: 2019Q1

REPORT INFORMATION
  Report Type: Report from Study
  Country: US (occurrence: US)
  Receive Date: 20181115
  Receipt Date: 20190321
  Transmission Date: 20190417
  Serious: Yes (Hospitalization, Disabling, Other)
  Sender: FDA-Public Use
  Company Number: US-ASTRAZENECA-2017SF25623

PATIENT
  Age: 58 Year
  Sex: Male
  Weight: 190 kg

DRUGS (17)
  1. SEROQUEL [Suspect]
     Active Substance: QUETIAPINE FUMARATE
     Indication: BIPOLAR DISORDER
     Route: 048
  2. CRESTOR [Suspect]
     Active Substance: ROSUVASTATIN CALCIUM
     Indication: BODY FAT DISORDER
     Route: 048
  3. XANAX [Concomitant]
     Active Substance: ALPRAZOLAM
  4. SEROQUEL [Suspect]
     Active Substance: QUETIAPINE FUMARATE
     Indication: BIPOLAR DISORDER
     Route: 048
  5. SEROQUEL [Suspect]
     Active Substance: QUETIAPINE FUMARATE
     Indication: SCHIZOPHRENIA
     Route: 048
     Dates: start: 2013, end: 2016
  6. GLIPIZIDE. [Concomitant]
     Active Substance: GLIPIZIDE
     Indication: DIABETES MELLITUS
  7. INSULIN [Concomitant]
     Active Substance: INSULIN NOS
     Indication: DIABETES MELLITUS
  8. KLONIPIN [Concomitant]
     Active Substance: CLONAZEPAM
  9. SEROQUEL [Suspect]
     Active Substance: QUETIAPINE FUMARATE
     Indication: SCHIZOPHRENIA
     Route: 048
  10. SEROQUEL [Suspect]
     Active Substance: QUETIAPINE FUMARATE
     Indication: SCHIZOPHRENIA
     Dosage: GENERIC
     Route: 065
  11. LITHIUM. [Concomitant]
     Active Substance: LITHIUM
  12. HYDROCODONE [Concomitant]
     Active Substance: HYDROCODONE
     Indication: PAIN
  13. METFORMIN [Concomitant]
     Active Substance: METFORMIN HYDROCHLORIDE
     Indication: DIABETES MELLITUS
  14. SEROQUEL [Suspect]
     Active Substance: QUETIAPINE FUMARATE
     Indication: SCHIZOPHRENIA
     Route: 048
  15. SEROQUEL [Suspect]
     Active Substance: QUETIAPINE FUMARATE
     Indication: BIPOLAR DISORDER
     Route: 048
     Dates: start: 2013, end: 2016
  16. SEROQUEL [Suspect]
     Active Substance: QUETIAPINE FUMARATE
     Indication: BIPOLAR DISORDER
     Dosage: GENERIC
     Route: 065
  17. TOUJEO [Concomitant]
     Active Substance: INSULIN GLARGINE
     Indication: DIABETES MELLITUS

REACTIONS (29)
  - Pollakiuria [Unknown]
  - Drug dependence [Unknown]
  - Suicidal ideation [Not Recovered/Not Resolved]
  - Therapeutic response unexpected [Unknown]
  - Intentional product misuse [Unknown]
  - Face injury [Unknown]
  - Urinary incontinence [Unknown]
  - Gingival injury [Unknown]
  - Dementia [Unknown]
  - Dyspnoea [Unknown]
  - Glaucoma [Unknown]
  - Overdose [Unknown]
  - Cerebrovascular accident [Unknown]
  - Diabetes mellitus [Unknown]
  - Apnoea [Unknown]
  - Weight increased [Unknown]
  - Tendon injury [Unknown]
  - Off label use [Recovered/Resolved]
  - Subdural haematoma [Unknown]
  - Blood triglycerides increased [Unknown]
  - Blood cholesterol increased [Unknown]
  - Head discomfort [Unknown]
  - Diplopia [Unknown]
  - Intentional dose omission [Unknown]
  - Diplegia [Unknown]
  - Feeling abnormal [Unknown]
  - Memory impairment [Unknown]
  - Depression [Unknown]
  - Tooth injury [Unknown]

NARRATIVE: CASE EVENT DATE: 2012
